FAERS Safety Report 23175231 (Version 1)
Quarter: 2023Q4

REPORT INFORMATION
  Report Type: Spontaneous
  Country: US (occurrence: US)
  Receive Date: 20231113
  Receipt Date: 20231113
  Transmission Date: 20240110
  Serious: No
  Sender: FDA-Public Use
  Company Number: US-AUROBINDO-AUR-APL-2023-057100

PATIENT
  Sex: Male
  Weight: 77 kg

DRUGS (1)
  1. MODAFINIL [Suspect]
     Active Substance: MODAFINIL
     Indication: Drug therapy
     Dosage: 100 MILLIGRAM (ONE EVERY FEW MONTHS)
     Route: 048

REACTIONS (2)
  - Drug ineffective [Unknown]
  - Product substitution issue [Unknown]
